FAERS Safety Report 10655374 (Version 2)
Quarter: 2015Q1

REPORT INFORMATION
  Report Type: Spontaneous
  Country: FR (occurrence: FR)
  Receive Date: 20141216
  Receipt Date: 20150318
  Transmission Date: 20150720
  Serious: Yes (Hospitalization)
  Sender: FDA-Public Use
  Company Number: FR-JNJFOC-20141206678

PATIENT
  Age: 47 Year
  Sex: Female

DRUGS (9)
  1. NEFOPAM [Concomitant]
     Active Substance: NEFOPAM
     Dosage: EVERY 6 HOURS
     Route: 065
  2. FORLAX [Concomitant]
     Active Substance: POLYETHYLENE GLYCOL 4000
     Dosage: ON MORNING
     Route: 065
  3. ABSTRAL [Concomitant]
     Active Substance: FENTANYL CITRATE
     Route: 065
  4. CAELYX (DOXORUBICIN HYDROCHLORIDE) [Suspect]
     Active Substance: DOXORUBICIN HYDROCHLORIDE
     Indication: BREAST CANCER
     Route: 042
  5. BECILAN [Concomitant]
     Active Substance: PYRIDOXINE
     Dosage: ON MORNING
     Route: 065
  6. VENLAFAXINE [Concomitant]
     Active Substance: VENLAFAXINE HYDROCHLORIDE
     Dosage: 3 CAPSULES ON MORNING
     Route: 065
  7. OXYCONTIN [Concomitant]
     Active Substance: OXYCODONE HYDROCHLORIDE
     Dosage: 40MG MORNING AND 60MG ON EVENING
     Route: 065
  8. DOLIPRANE [Concomitant]
     Active Substance: ACETAMINOPHEN
     Dosage: EVERY 8 HOURS
     Route: 065
  9. ALPRAZOLAM. [Concomitant]
     Active Substance: ALPRAZOLAM
     Dosage: 1-1-2
     Route: 065

REACTIONS (4)
  - Diplopia [Not Recovered/Not Resolved]
  - Ophthalmoplegia [Unknown]
  - Retinal detachment [Not Recovered/Not Resolved]
  - Blindness [Not Recovered/Not Resolved]

NARRATIVE: CASE EVENT DATE: 20141116
